FAERS Safety Report 6137275-7 (Version None)
Quarter: 2009Q1

REPORT INFORMATION
  Report Type: 
  Country: None (occurrence: None)
  Receive Date: 20090330
  Receipt Date: 20090316
  Transmission Date: 20090719
  Serious: Yes (Hospitalization)
  Sender: FDA-Public Use
  Company Number: FR-JNJFOC-20090305286

PATIENT
  Age: 35 Year
  Sex: Male

DRUGS (5)
  1. REMICADE [Suspect]
     Route: 042
  2. REMICADE [Suspect]
     Indication: COLITIS ULCERATIVE
     Route: 042
  3. ROWASA [Concomitant]
  4. INIPOMP [Concomitant]
  5. CALCIT D3 [Concomitant]

REACTIONS (2)
  - COLECTOMY TOTAL [None]
  - DRUG INEFFECTIVE [None]
